FAERS Safety Report 4838582-8 (Version None)
Quarter: 2005Q4

REPORT INFORMATION
  Report Type: 
  Country: None (occurrence: None)
  Receive Date: 20051129
  Receipt Date: 20051115
  Transmission Date: 20060501
  Serious: Yes (Other)
  Sender: FDA-Public Use
  Company Number: US-AMGEN-US157986

PATIENT
  Age: 65 Year
  Sex: Female

DRUGS (2)
  1. EPOGEN [Suspect]
     Indication: PRE-EXISTING DISEASE
     Dates: start: 20050201, end: 20050601
  2. INTERFERON [Concomitant]

REACTIONS (1)
  - APLASIA PURE RED CELL [None]
